FAERS Safety Report 17919843 (Version 1)
Quarter: 2020Q2

REPORT INFORMATION
  Report Type: Spontaneous
  Country: DK (occurrence: DK)
  Receive Date: 20200619
  Receipt Date: 20200619
  Transmission Date: 20200714
  Serious: Yes (Hospitalization)
  Sender: FDA-Public Use
  Company Number: DK-B.I. PHARMACEUTICALS,INC./RIDGEFIELD-2020-12-030177

PATIENT
  Age: 69 Year
  Sex: Female

DRUGS (11)
  1. ACETYLSALICYLIC ACID [Concomitant]
     Active Substance: ASPIRIN
     Indication: THROMBOSIS PROPHYLAXIS
     Dosage: STYRKE: 75 MG
     Route: 048
     Dates: start: 20160819
  2. MICONAZOLE. [Concomitant]
     Active Substance: MICONAZOLE
     Indication: FUNGAL INFECTION
     Dosage: STYRKE: 20 MG/G
     Route: 065
     Dates: start: 20180611
  3. FUCICORT [Concomitant]
     Active Substance: BETAMETHASONE VALERATE\FUSIDIC ACID
     Indication: ECZEMA INFECTED
     Dosage: STYRKE: 1+20MG/G
     Route: 065
     Dates: start: 20170315
  4. NEDOCROMIL [Concomitant]
     Active Substance: NEDOCROMIL
     Indication: CONJUNCTIVITIS ALLERGIC
     Dosage: STYRKE: 20 MG/ML
     Route: 050
     Dates: start: 20170320
  5. JARDIANCE [Suspect]
     Active Substance: EMPAGLIFLOZIN
     Indication: TYPE 2 DIABETES MELLITUS
     Dosage: STYRKE: 25 MG
     Route: 048
     Dates: start: 20160819, end: 20200525
  6. LIRAGLUTIDE [Concomitant]
     Active Substance: LIRAGLUTIDE
     Indication: TYPE 2 DIABETES MELLITUS
     Dosage: STYRKE: 6 MG/ML, ?DOSAGE FORM: SOLUTION FOR INJECTION IN PRE-FILLED PEN
     Route: 058
     Dates: start: 20140805
  7. MOVICOL [Concomitant]
     Active Substance: POLYETHYLENE GLYCOL 3350\POTASSIUM CHLORIDE\SODIUM BICARBONATE\SODIUM CHLORIDE
     Indication: CONSTIPATION
     Dosage: STYRKE: UKENDT?DOSAGE FORM: POWDER FOR ORAL SOLUTION
     Route: 048
     Dates: start: 20180613
  8. FUSIDIC ACID [Concomitant]
     Active Substance: FUSIDIC ACID
     Indication: DERMATITIS
     Dosage: STYRKE: 2%
     Route: 065
     Dates: start: 20180706
  9. CODEINE [Concomitant]
     Active Substance: CODEINE
     Indication: PAIN
     Dosage: STYRKE: 25 MG
     Route: 048
     Dates: start: 20190411
  10. PARACETAMOL [Concomitant]
     Active Substance: ACETAMINOPHEN
     Indication: PAIN
     Dosage: STYRKE: 500 MG
     Route: 048
     Dates: start: 20180603
  11. IBUPROFEN. [Concomitant]
     Active Substance: IBUPROFEN
     Indication: PAIN
     Dosage: STYRKE: 400 MG?DOSIS: H?JST 3 GANGE DAGLIGT; AS REQUIRED
     Route: 048
     Dates: start: 20180723

REACTIONS (1)
  - Ketoacidosis [Recovered/Resolved]

NARRATIVE: CASE EVENT DATE: 20200525
